FAERS Safety Report 26075082 (Version 1)
Quarter: 2025Q4

REPORT INFORMATION
  Report Type: Other
  Country: US (occurrence: US)
  Receive Date: 20251121
  Receipt Date: 20251121
  Transmission Date: 20260117
  Serious: No
  Sender: VERASTEM
  Company Number: US-VERASTEM-250908US-AFCPK-00547

PATIENT

DRUGS (1)
  1. AVMAPKI FAKZYNJA CO-PACK [Suspect]
     Active Substance: AVUTOMETINIB POTASSIUM\DEFACTINIB HYDROCHLORIDE
     Indication: Ovarian cancer
     Dosage: AVMAPKI 3 CAPS ORALLY TWICE WEEKLY FOR THE FIRST 3 WEEKS, FAKZYNJA 1 TAB ORALLY DAILY FOR THE FIRST
     Route: 048
     Dates: start: 20250831

REACTIONS (1)
  - Halo vision [Unknown]
